FAERS Safety Report 12010351 (Version 1)
Quarter: 2016Q1

REPORT INFORMATION
  Report Type: Spontaneous
  Country: US (occurrence: None)
  Receive Date: 20160204
  Receipt Date: 20160204
  Transmission Date: 20160526
  Serious: Yes (Hospitalization)
  Sender: FDA-Public Use
  Company Number: None

PATIENT
  Age: 67 Year
  Sex: Male
  Weight: 89.5 kg

DRUGS (1)
  1. DASABUVIR/OMBITASVIR/PARITAPREVIR/RITONAVIR [Suspect]
     Active Substance: DASABUVIR\OMBITASVIR\PARITAPREVIR\RITONAVIR
     Indication: HEPATITIS C
     Route: 048
     Dates: start: 20150813, end: 20151115

REACTIONS (11)
  - Chest pain [None]
  - Tachycardia [None]
  - Mitral valve incompetence [None]
  - Asthenia [None]
  - Atrial fibrillation [None]
  - Dry skin [None]
  - Palpitations [None]
  - Fatigue [None]
  - Jaundice [None]
  - Contusion [None]
  - Dyspnoea [None]

NARRATIVE: CASE EVENT DATE: 20160202
